FAERS Safety Report 18564870 (Version 1)
Quarter: 2020Q4

REPORT INFORMATION
  Report Type: Spontaneous
  Country: SE (occurrence: SE)
  Receive Date: 20201201
  Receipt Date: 20201201
  Transmission Date: 20210114
  Serious: Yes (Other)
  Sender: FDA-Public Use
  Company Number: SE-PFIZER INC-2020466932

PATIENT
  Sex: Female

DRUGS (8)
  1. PREDNISONE. [Suspect]
     Active Substance: PREDNISONE
     Indication: CHRONIC LYMPHOCYTIC LEUKAEMIA
     Dosage: UNK, CYCLIC
     Route: 065
     Dates: start: 20050318, end: 20050608
  2. LEUKERAN [Suspect]
     Active Substance: CHLORAMBUCIL
     Indication: CHRONIC LYMPHOCYTIC LEUKAEMIA
     Dosage: UNK
     Route: 065
  3. SENDOXAN [Suspect]
     Active Substance: CYCLOPHOSPHAMIDE
     Indication: CHRONIC LYMPHOCYTIC LEUKAEMIA
     Dosage: UNK
     Route: 065
  4. CORTISONE [Suspect]
     Active Substance: CORTISONE
     Dosage: UNK
     Route: 065
  5. CYCLOPHOSPHAMIDE. [Suspect]
     Active Substance: CYCLOPHOSPHAMIDE
     Indication: CHRONIC LYMPHOCYTIC LEUKAEMIA
     Dosage: UNK, CYCLIC
     Route: 065
     Dates: start: 20050318, end: 20050608
  6. VINCRISTINE SULFATE. [Suspect]
     Active Substance: VINCRISTINE SULFATE
     Indication: CHRONIC LYMPHOCYTIC LEUKAEMIA
     Dosage: UNK UNK, CYCLIC
     Route: 065
     Dates: start: 20050318, end: 20050608
  7. DOXORUBICIN HCL [Suspect]
     Active Substance: DOXORUBICIN HYDROCHLORIDE
     Indication: CHRONIC LYMPHOCYTIC LEUKAEMIA
     Dosage: UNK, CYCLIC
     Route: 065
     Dates: start: 20050318, end: 20050608
  8. MABTHERA [Suspect]
     Active Substance: RITUXIMAB
     Indication: CHRONIC LYMPHOCYTIC LEUKAEMIA
     Dosage: UNK, CYCLIC
     Route: 065
     Dates: start: 20050318, end: 20050608

REACTIONS (34)
  - Eye irritation [Unknown]
  - Dry eye [Unknown]
  - Hyperhidrosis [Unknown]
  - Blood lactate dehydrogenase increased [Unknown]
  - Rhinorrhoea [Unknown]
  - Auditory disorder [Unknown]
  - Nasopharyngitis [Unknown]
  - White blood cell count increased [Unknown]
  - Visual impairment [Unknown]
  - Haemoglobin decreased [Unknown]
  - Cough [Unknown]
  - Feeling abnormal [Unknown]
  - Fatigue [Unknown]
  - Osteoporosis [Unknown]
  - Glaucoma [Unknown]
  - Autoimmune haemolytic anaemia [Unknown]
  - Immunodeficiency [Unknown]
  - Malaise [Unknown]
  - Pyrexia [Unknown]
  - Weight decreased [Unknown]
  - Pain in extremity [Unknown]
  - Intervertebral disc compression [Unknown]
  - Stomatitis [Unknown]
  - Gallbladder disorder [Unknown]
  - Oral pain [Unknown]
  - Skin fragility [Unknown]
  - Night sweats [Unknown]
  - Back pain [Unknown]
  - Decreased appetite [Unknown]
  - Infection [Recovered/Resolved]
  - Abdominal pain upper [Unknown]
  - Hypotension [Unknown]
  - Alopecia [Unknown]
  - Musculoskeletal chest pain [Unknown]
